FAERS Safety Report 11640533 (Version 2)
Quarter: 2015Q4

REPORT INFORMATION
  Report Type: Spontaneous
  Country: RS (occurrence: RS)
  Receive Date: 20151019
  Receipt Date: 20151021
  Transmission Date: 20160304
  Serious: Yes (Hospitalization)
  Sender: FDA-Public Use
  Company Number: PHHY2015RS125168

PATIENT
  Age: 49 Year
  Sex: Female

DRUGS (3)
  1. DICLOFENAC [Suspect]
     Active Substance: DICLOFENAC
     Indication: OSTEOCHONDROSIS
     Dosage: 75 MG, UNK
     Route: 030
     Dates: start: 20100504, end: 20100504
  2. ACTOVEGIN [Concomitant]
     Active Substance: UNSPECIFIED INGREDIENT
     Indication: PRODUCT USED FOR UNKNOWN INDICATION
     Dosage: UNK
     Route: 030
     Dates: start: 20100504, end: 20100509
  3. DICLOFENAC [Suspect]
     Active Substance: DICLOFENAC
     Indication: HERNIA

REACTIONS (5)
  - Pain [Unknown]
  - Skin burning sensation [Unknown]
  - Skin discolouration [Unknown]
  - Injection site necrosis [Unknown]
  - Injection site extravasation [Unknown]
